FAERS Safety Report 10238928 (Version 1)
Quarter: 2014Q1

REPORT INFORMATION
  Report Type: Spontaneous
  Country: US (occurrence: None)
  Receive Date: 20140306
  Receipt Date: 20140306
  Transmission Date: 20141002
  Serious: Yes (Hospitalization, Disabling, Other)
  Sender: FDA-Public Use
  Company Number: 163-21880-13040329

PATIENT
  Age: 72 Year
  Sex: Male

DRUGS (1)
  1. REVLIMID (LENALIDOMIDE) 15 MILLIGRAM [Suspect]
     Indication: PLASMA CELL MYELOMA
     Route: 048
     Dates: start: 20120827

REACTIONS (3)
  - Hip fracture [None]
  - Fall [None]
  - Performance status decreased [None]
